FAERS Safety Report 9608866 (Version 1)
Quarter: 2013Q4

REPORT INFORMATION
  Report Type: Spontaneous
  Country: SG (occurrence: SG)
  Receive Date: 20131009
  Receipt Date: 20131009
  Transmission Date: 20140711
  Serious: Yes (Other)
  Sender: FDA-Public Use
  Company Number: SG-PFIZER INC-2013285426

PATIENT
  Age: 76 Year
  Sex: Female

DRUGS (3)
  1. PHENYTOIN [Suspect]
     Dosage: 300MG ONCE NIGHT
     Route: 048
     Dates: start: 20130713, end: 20130830
  2. ALLOPURINOL [Suspect]
     Dosage: 100MG ONCE NIGHT
     Route: 048
  3. OMEPRAZOLE [Suspect]
     Dosage: 20MG ONCE NIGHT
     Dates: start: 20130725, end: 20130901

REACTIONS (6)
  - Dermatitis exfoliative [Recovered/Resolved]
  - Face oedema [Recovered/Resolved]
  - Lip swelling [Recovered/Resolved]
  - Liver function test abnormal [Recovered/Resolved]
  - Periorbital oedema [Recovered/Resolved]
  - Rash maculo-papular [Recovered/Resolved]
